FAERS Safety Report 12497314 (Version 1)
Quarter: 2016Q2

REPORT INFORMATION
  Report Type: Spontaneous
  Country: US (occurrence: US)
  Receive Date: 20160624
  Receipt Date: 20160624
  Transmission Date: 20160815
  Serious: Yes (Hospitalization)
  Sender: FDA-Public Use
  Company Number: US-PFIZER INC-2016309834

PATIENT
  Age: 56 Year
  Sex: Male
  Weight: 122.47 kg

DRUGS (3)
  1. DILANTIN [Suspect]
     Active Substance: PHENYTOIN
     Indication: SEIZURE
     Dosage: 300 MG, 2X/DAY, 100 MG 3 IN THE MORNING, 3 AT NIGHT
  2. COUMADIN [Concomitant]
     Active Substance: WARFARIN SODIUM
     Indication: THROMBOSIS
     Dosage: 1.5 TO 2 TABLETS OR 7.5 MG OR 10 MG PER DAY, DAILY
     Route: 048
     Dates: start: 201501, end: 201605
  3. LOVENOX [Concomitant]
     Active Substance: ENOXAPARIN SODIUM
     Indication: THROMBOSIS
     Dosage: 1 DF, 2X/DAY, 2 INJECTIONS PER DAY, ONE IN THE MORNING AND ONE AT NIGHT
     Dates: start: 201412, end: 201501

REACTIONS (4)
  - Drug level increased [Unknown]
  - Deep vein thrombosis [Recovering/Resolving]
  - Peripheral swelling [Recovering/Resolving]
  - Thrombosis [Recovering/Resolving]

NARRATIVE: CASE EVENT DATE: 201407
